FAERS Safety Report 10253420 (Version 1)
Quarter: 2014Q2

REPORT INFORMATION
  Report Type: Spontaneous
  Country: JP (occurrence: JP)
  Receive Date: 20140623
  Receipt Date: 20140623
  Transmission Date: 20141212
  Serious: Yes (Hospitalization)
  Sender: FDA-Public Use
  Company Number: JP-NAPPMUNDI-GBR-2014-0018831

PATIENT
  Age: 87 Year
  Sex: Female

DRUGS (2)
  1. NORSPAN 5MG [Suspect]
     Indication: OSTEOARTHRITIS
     Dosage: 5 MCG, Q1H
     Route: 062
     Dates: start: 20140423, end: 20140425
  2. LOXOPROFEN SODIUM [Concomitant]
     Route: 061

REACTIONS (2)
  - Blood pressure increased [Recovering/Resolving]
  - Pyrexia [Recovering/Resolving]
